FAERS Safety Report 25374770 (Version 1)
Quarter: 2025Q2

REPORT INFORMATION
  Report Type: Spontaneous
  Country: US (occurrence: None)
  Receive Date: 20250528
  Receipt Date: 20250528
  Transmission Date: 20250717
  Serious: No
  Sender: FDA-CTU
  Company Number: None

PATIENT
  Age: 38 Year
  Sex: Female
  Weight: 65.7 kg

DRUGS (6)
  1. ZYRTEC [Suspect]
     Active Substance: CETIRIZINE HYDROCHLORIDE
     Indication: Seasonal allergy
     Dates: start: 20250301, end: 20250526
  2. TRAZODONE [Concomitant]
     Active Substance: TRAZODONE HYDROCHLORIDE
  3. ZOLOFT [Concomitant]
     Active Substance: SERTRALINE HYDROCHLORIDE
  4. Prebiotic/probiotic gummy [Concomitant]
  5. multi vitamin gummy [Concomitant]
  6. fiber gummy [Concomitant]

REACTIONS (1)
  - Pruritus [None]

NARRATIVE: CASE EVENT DATE: 20250528
